FAERS Safety Report 9223063 (Version 6)
Quarter: 2014Q2

REPORT INFORMATION
  Report Type: Spontaneous
  Country: US (occurrence: VN)
  Receive Date: 20130410
  Receipt Date: 20140612
  Transmission Date: 20141212
  Serious: Yes (Hospitalization, Disabling, Other)
  Sender: FDA-Public Use
  Company Number: US-009507513-1304USA002476

PATIENT
  Age: 80 Year
  Sex: Female

DRUGS (23)
  1. FOSAMAX [Suspect]
     Dosage: 70 UNK, UNK
     Route: 048
  2. BONIVA [Suspect]
     Dosage: UNK
  3. ZOCOR [Concomitant]
     Dosage: UNK
  4. ZOCOR [Concomitant]
     Dosage: UNK
  5. TRAVATAN [Concomitant]
     Dosage: UNK
  6. TRAVATAN Z [Concomitant]
     Dosage: UNK
  7. CYCLOBENZAPRINE HYDROCHLORIDE [Concomitant]
     Dosage: UNK
  8. ACETAMINOPHEN (+) BUTALBITAL (+) CAFFEINE [Concomitant]
     Dosage: UNK
  9. LEVAQUIN [Concomitant]
     Dosage: UNK
  10. METRONIDAZOLE [Concomitant]
     Dosage: UNK
  11. HYZAAR [Concomitant]
     Dosage: UNK
  12. HYZAAR [Concomitant]
     Dosage: UNK
  13. ACETAMINOPHEN (+) DICHLORALPHENAZONE (+) ISOMETHEPTENE MUCATE [Concomitant]
     Dosage: UNK
  14. LYRICA [Concomitant]
     Dosage: UNK
  15. AZASITE [Concomitant]
     Dosage: UNK
  16. DICLOFENAC SODIUM [Concomitant]
     Dosage: UNK
  17. METHYLPREDNISOLONE SODIUM SUCCINATE [Concomitant]
     Dosage: UNK
  18. GABAPENTIN [Concomitant]
     Dosage: UNK
  19. PROMETHAZINE HYDROCHLORIDE [Concomitant]
     Dosage: UNK
  20. PRILOSEC [Concomitant]
     Dosage: UNK
  21. TRAMADOL HYDROCHLORIDE [Concomitant]
     Dosage: UNK
  22. MEGESTROL ACETATE [Concomitant]
     Dosage: UNK
  23. MELOXICAM [Concomitant]
     Dosage: UNK

REACTIONS (6)
  - Femur fracture [Unknown]
  - Limb operation [Unknown]
  - Internal fixation of fracture [Unknown]
  - Walking aid user [Not Recovered/Not Resolved]
  - Pain [Not Recovered/Not Resolved]
  - Arthralgia [Unknown]
